FAERS Safety Report 22300678 (Version 7)
Quarter: 2024Q1

REPORT INFORMATION
  Report Type: Spontaneous
  Country: JP (occurrence: JP)
  Receive Date: 20230509
  Receipt Date: 20240313
  Transmission Date: 20240410
  Serious: Yes (Death, Life-Threatening, Hospitalization, Other)
  Sender: FDA-Public Use
  Company Number: JP-CHEMOCENTRYX, INC.-2022JPCCXI0420

PATIENT
  Age: 76 Year
  Sex: Female
  Weight: 42.5 kg

DRUGS (36)
  1. TAVNEOS [Suspect]
     Active Substance: AVACOPAN
     Indication: Microscopic polyangiitis
     Dosage: 30 MG BID (60 MG/DAY)
     Route: 048
     Dates: start: 20220823, end: 20221008
  2. SULFAMETHOXAZOLE\TRIMETHOPRIM [Suspect]
     Active Substance: SULFAMETHOXAZOLE\TRIMETHOPRIM
     Indication: Prophylaxis
     Dosage: 400/80 MG
     Route: 065
     Dates: start: 20220819, end: 20221015
  3. SULFAMETHOXAZOLE\TRIMETHOPRIM [Suspect]
     Active Substance: SULFAMETHOXAZOLE\TRIMETHOPRIM
     Indication: Antifungal prophylaxis
  4. RABEPRAZOLE SODIUM [Concomitant]
     Active Substance: RABEPRAZOLE SODIUM
     Indication: Prophylaxis against gastrointestinal ulcer
     Dosage: 10 MILLIGRAM, QD
     Route: 048
     Dates: start: 20220815, end: 20221013
  5. RABEPRAZOLE SODIUM [Concomitant]
     Active Substance: RABEPRAZOLE SODIUM
     Indication: Gastrooesophageal reflux disease
  6. ALFACALCIDOL [Concomitant]
     Active Substance: ALFACALCIDOL
     Indication: Osteoporosis prophylaxis
     Dosage: 0.5 MICROGRAM, QD
     Route: 048
     Dates: start: 20220815, end: 20221013
  7. TENELIGLIPTIN [Concomitant]
     Active Substance: TENELIGLIPTIN
     Indication: Steroid diabetes
     Dosage: UNK
     Route: 048
     Dates: start: 20220826, end: 20221006
  8. AMLODIPINE [Concomitant]
     Active Substance: AMLODIPINE BESYLATE
     Indication: Hypertension
     Dosage: UNK
     Route: 048
     Dates: start: 20221013
  9. BONALON [Concomitant]
     Active Substance: ALENDRONATE SODIUM
     Indication: Osteoporosis prophylaxis
     Dosage: UNK
     Route: 048
     Dates: start: 20220822, end: 20221010
  10. BONALON [Concomitant]
     Active Substance: ALENDRONATE SODIUM
     Indication: Prophylaxis
  11. REPAGLINIDE [Concomitant]
     Active Substance: REPAGLINIDE
     Indication: Steroid diabetes
     Dosage: UNK
     Route: 048
     Dates: start: 20220829, end: 20220909
  12. CLOTIAZEPAM [Concomitant]
     Active Substance: CLOTIAZEPAM
     Indication: Depression
     Dosage: UNK
     Route: 048
     Dates: end: 20221012
  13. CLOTIAZEPAM [Concomitant]
     Active Substance: CLOTIAZEPAM
     Indication: Insomnia
     Dosage: RESTARTED IN THE EVENING.
     Route: 065
     Dates: start: 20221012
  14. MOSAPRIDE CITRATE [Concomitant]
     Active Substance: MOSAPRIDE CITRATE
     Indication: Abdominal discomfort
     Dosage: UNK
     Route: 048
  15. BELSOMRA [Concomitant]
     Active Substance: SUVOREXANT
     Indication: Depression
     Dosage: UNK
     Route: 048
  16. PREDONINE [Concomitant]
     Active Substance: PREDNISOLONE
     Indication: Microscopic polyangiitis
     Dosage: UNK
     Route: 048
     Dates: start: 20220818
  17. PREDONINE [Concomitant]
     Active Substance: PREDNISOLONE
     Indication: Vanishing bile duct syndrome
     Dosage: UNK
     Route: 048
     Dates: start: 20220826
  18. PREDONINE [Concomitant]
     Active Substance: PREDNISOLONE
     Dosage: UNK
     Route: 048
     Dates: start: 20220902
  19. PREDONINE [Concomitant]
     Active Substance: PREDNISOLONE
     Dosage: UNK
     Route: 048
     Dates: start: 20220909
  20. PREDONINE [Concomitant]
     Active Substance: PREDNISOLONE
     Dosage: UNK
     Route: 048
     Dates: start: 20220927
  21. PREDONINE [Concomitant]
     Active Substance: PREDNISOLONE
     Dosage: UNK
     Route: 048
     Dates: start: 20221019, end: 20221024
  22. PREDONINE [Concomitant]
     Active Substance: PREDNISOLONE
     Dosage: UNK
     Route: 048
     Dates: start: 20221025, end: 20221107
  23. PREDONINE [Concomitant]
     Active Substance: PREDNISOLONE
     Dosage: UNK
     Route: 048
     Dates: start: 20221108, end: 20221114
  24. PREDONINE [Concomitant]
     Active Substance: PREDNISOLONE
     Dosage: UNK
     Route: 048
     Dates: start: 20221115
  25. PREDONINE [Concomitant]
     Active Substance: PREDNISOLONE
     Dosage: UNK
     Route: 048
     Dates: start: 202303
  26. AZELNIDIPINE [Concomitant]
     Active Substance: AZELNIDIPINE
     Indication: Hypertension
     Dosage: UNK
     Route: 048
     Dates: start: 2007
  27. CLARITHROMYCIN [Concomitant]
     Active Substance: CLARITHROMYCIN
     Indication: Bronchiectasis
     Dosage: UNK
     Route: 048
     Dates: start: 2009
  28. JANUVIA [Concomitant]
     Active Substance: SITAGLIPTIN PHOSPHATE
     Indication: Product used for unknown indication
     Dosage: INCREASED
     Route: 048
     Dates: start: 20221026
  29. SITAGLIPTIN [Concomitant]
     Active Substance: SITAGLIPTIN
     Indication: Steroid diabetes
     Dosage: UNK
     Route: 065
  30. ESOMEPRAZOLE [Concomitant]
     Active Substance: ESOMEPRAZOLE
     Indication: Gastrooesophageal reflux disease
     Dosage: UNK
     Route: 065
  31. ESZOPICLONE [Concomitant]
     Active Substance: ESZOPICLONE
     Indication: Insomnia
     Dosage: UNK
     Route: 065
  32. RITUXIMAB [Concomitant]
     Active Substance: RITUXIMAB
     Indication: Microscopic polyangiitis
     Dosage: (375 MG/M2/WEEK)
     Dates: start: 20220819, end: 20220819
  33. RITUXIMAB [Concomitant]
     Active Substance: RITUXIMAB
     Dosage: (375 MG/M2/WEEK)
     Dates: start: 20220826, end: 20220826
  34. RITUXIMAB [Concomitant]
     Active Substance: RITUXIMAB
     Dosage: (375 MG/M2/WEEK)
     Dates: start: 20220902, end: 20220902
  35. NEXIUM [Concomitant]
     Active Substance: ESOMEPRAZOLE MAGNESIUM
     Indication: Gastrooesophageal reflux disease
     Dosage: UNK
     Route: 048
  36. CLOTIAZEPAM [Concomitant]
     Active Substance: CLOTIAZEPAM
     Indication: Anxiety
     Dosage: UNK
     Route: 048

REACTIONS (14)
  - Vanishing bile duct syndrome [Fatal]
  - Jaundice [Fatal]
  - Hepatic function abnormal [Fatal]
  - Cholangitis [Fatal]
  - Yellow skin [Fatal]
  - Gallbladder enlargement [Fatal]
  - Blood bilirubin increased [Fatal]
  - Hepatic enzyme increased [Fatal]
  - Cholestasis [Fatal]
  - Hepatocellular injury [Fatal]
  - Decreased appetite [Fatal]
  - Hepatic failure [Fatal]
  - Hyperventilation [Unknown]
  - Palpitations [Unknown]

NARRATIVE: CASE EVENT DATE: 20221006
